FAERS Safety Report 20348511 (Version 1)
Quarter: 2022Q1

REPORT INFORMATION
  Report Type: Report from Study
  Country: GB (occurrence: GB)
  Receive Date: 20220119
  Receipt Date: 20220119
  Transmission Date: 20220423
  Serious: Yes (Congenital Anomaly)
  Sender: FDA-Public Use
  Company Number: GB-BRISTOL-MYERS SQUIBB COMPANY-BMS-2021-127163

PATIENT
  Sex: Male
  Weight: 2.9 kg

DRUGS (4)
  1. ATAZANAVIR SULFATE [Suspect]
     Active Substance: ATAZANAVIR SULFATE
     Indication: Product used for unknown indication
     Dosage: 1 DOSAGE FORM, QD (1 TAB/CAPS)
     Route: 064
     Dates: start: 20190828, end: 20201111
  2. EMTRICITABINE\TENOFOVIR DISOPROXIL FUMARATE [Suspect]
     Active Substance: EMTRICITABINE\TENOFOVIR DISOPROXIL FUMARATE
     Indication: Product used for unknown indication
     Dosage: 1 DOSAGE FORM, QD (1 TAB/CAPS)
     Route: 064
     Dates: start: 20190828, end: 20201111
  3. RITONAVIR [Suspect]
     Active Substance: RITONAVIR
     Indication: Product used for unknown indication
     Dosage: 1 DOSAGE FORM, QD (1 TAB/CAPS)
     Route: 064
     Dates: start: 20191028, end: 20201111
  4. TENOFOVIR DISOPROXIL FUMARATE [Suspect]
     Active Substance: TENOFOVIR DISOPROXIL FUMARATE
     Indication: Product used for unknown indication
     Dosage: 1 DOSAGE FORM, QD (TABS/CAPS)
     Route: 064
     Dates: start: 20191028

REACTIONS (7)
  - Trisomy 21 [Unknown]
  - Foetal chromosome abnormality [Unknown]
  - Craniofacial deformity [Unknown]
  - Congenital nystagmus [Unknown]
  - Ultrasound antenatal screen [Unknown]
  - Oedema [Unknown]
  - Foetal exposure during pregnancy [Unknown]

NARRATIVE: CASE EVENT DATE: 20200706
